FAERS Safety Report 7064880-6 (Version None)
Quarter: 2010Q4

REPORT INFORMATION
  Report Type: 
  Country: None (occurrence: None)
  Receive Date: 20101027
  Receipt Date: 19881126
  Transmission Date: 20110411
  Serious: Yes (Death, Life-Threatening, Hospitalization, Disabling, Other)
  Sender: FDA-Public Use
  Company Number: DE-ROCHE-880315123001

PATIENT
  Sex: Female
  Weight: 62 kg

DRUGS (2)
  1. TIGASON [Suspect]
     Indication: ORAL LICHEN PLANUS
     Route: 048
     Dates: start: 19860701
  2. TIGASON [Suspect]
     Route: 048
     Dates: end: 19860902

REACTIONS (2)
  - DEATH [None]
  - OESOPHAGEAL CARCINOMA [None]
